FAERS Safety Report 9455618 (Version 2)
Quarter: 2013Q4

REPORT INFORMATION
  Report Type: Spontaneous
  Country: US (occurrence: US)
  Receive Date: 20130813
  Receipt Date: 20131021
  Transmission Date: 20140711
  Serious: Yes (Death, Hospitalization, Disabling, Other)
  Sender: FDA-Public Use
  Company Number: US-MERCK-1308USA005529

PATIENT
  Sex: Male
  Weight: 68.93 kg

DRUGS (3)
  1. JANUVIA [Suspect]
     Indication: TYPE 2 DIABETES MELLITUS
     Dosage: 100 MG, QD
     Route: 048
     Dates: start: 2006, end: 201104
  2. BYETTA [Suspect]
     Indication: PRODUCT USED FOR UNKNOWN INDICATION
  3. NITROGLYCERIN [Concomitant]

REACTIONS (60)
  - Pancreatic carcinoma [Not Recovered/Not Resolved]
  - Exploratory operation [Unknown]
  - Myocardial infarction [Unknown]
  - Carcinoma in situ [Unknown]
  - Myocardial infarction [Unknown]
  - Oesophageal stenosis [Unknown]
  - Acute myocardial infarction [Unknown]
  - Syncope [Unknown]
  - Chest pain [Unknown]
  - Metastatic neoplasm [Unknown]
  - Suicide attempt [Unknown]
  - Tumour excision [Unknown]
  - Sepsis [Unknown]
  - Shock [Unknown]
  - Ascites [Unknown]
  - Adenocarcinoma gastric [Fatal]
  - Gastritis [Unknown]
  - Vomiting [Not Recovered/Not Resolved]
  - Weight decreased [Unknown]
  - Gingivitis [Unknown]
  - Peripheral vascular disorder [Unknown]
  - Colon adenoma [Unknown]
  - Anaemia [Unknown]
  - Coronary artery disease [Unknown]
  - Gastric ulcer [Unknown]
  - Duodenitis [Unknown]
  - Cardiomyopathy [Unknown]
  - Hyperlipidaemia [Unknown]
  - Hypothyroidism [Unknown]
  - Asthma [Unknown]
  - Benign prostatic hyperplasia [Unknown]
  - Depression [Unknown]
  - Anxiety [Unknown]
  - Dementia [Unknown]
  - Intestinal mass [Unknown]
  - Biopsy rectum [Unknown]
  - Atrial fibrillation [Unknown]
  - Dyspnoea [Unknown]
  - Infrequent bowel movements [Unknown]
  - Melaena [Unknown]
  - Abdominal tenderness [Not Recovered/Not Resolved]
  - Urinary retention [Not Recovered/Not Resolved]
  - Urinary hesitation [Unknown]
  - Excessive skin [Unknown]
  - Oesophageal achalasia [Unknown]
  - Drug intolerance [Unknown]
  - Ventricular hypokinesia [Unknown]
  - Dysplasia [Unknown]
  - Sleep disorder [Unknown]
  - Anaemia [Not Recovered/Not Resolved]
  - Pneumonia [Unknown]
  - Anaemia [Unknown]
  - Procedural hypertension [Unknown]
  - Sinus tachycardia [Unknown]
  - Arteriosclerosis [Unknown]
  - Peripheral arterial occlusive disease [Unknown]
  - Hypoxia [Unknown]
  - Gastrooesophageal reflux disease [Unknown]
  - Nausea [Unknown]
  - Off label use [Unknown]
